FAERS Safety Report 18097674 (Version 2)
Quarter: 2020Q3

REPORT INFORMATION
  Report Type: Spontaneous
  Country: US (occurrence: US)
  Receive Date: 20200731
  Receipt Date: 20200916
  Transmission Date: 20201103
  Serious: Yes (Hospitalization, Other)
  Sender: FDA-Public Use
  Company Number: US-SCIEGEN-2020SCILIT00148

PATIENT
  Age: 42 Year
  Sex: Female
  Weight: 75 kg

DRUGS (7)
  1. QUETIAPINE. [Suspect]
     Active Substance: QUETIAPINE
     Indication: PRODUCT USED FOR UNKNOWN INDICATION
     Route: 048
  2. NALOXONE [Interacting]
     Active Substance: NALOXONE
     Route: 065
  3. DIVALPROEX SODIUM. [Suspect]
     Active Substance: DIVALPROEX SODIUM
     Indication: PRODUCT USED FOR UNKNOWN INDICATION
     Route: 048
  4. ACTIVATED CHARCOAL. [Interacting]
     Active Substance: ACTIVATED CHARCOAL
     Indication: PNEUMONIA
     Route: 065
  5. ERTAPENEM. [Interacting]
     Active Substance: ERTAPENEM SODIUM
     Indication: DRUG LEVEL INCREASED
  6. ERTAPENEM. [Interacting]
     Active Substance: ERTAPENEM SODIUM
     Indication: PNEUMONIA
     Route: 042
  7. ACTIVATED CHARCOAL. [Interacting]
     Active Substance: ACTIVATED CHARCOAL
     Indication: DRUG LEVEL INCREASED

REACTIONS (6)
  - Tachycardia [Unknown]
  - Respiratory distress [Unknown]
  - Intentional overdose [Unknown]
  - Metabolic acidosis [Unknown]
  - Unresponsive to stimuli [Unknown]
  - Pneumonia aspiration [Unknown]
